FAERS Safety Report 6214502-9 (Version None)
Quarter: 2009Q2

REPORT INFORMATION
  Report Type: 
  Country: None (occurrence: None)
  Receive Date: 20090604
  Receipt Date: 20090420
  Transmission Date: 20091009
  Serious: No
  Sender: FDA-Public Use
  Company Number: US-BAYER-200915558NA

PATIENT
  Age: 39 Year
  Sex: Female

DRUGS (1)
  1. MIRENA [Suspect]
     Indication: CONTRACEPTION
     Dosage: CONTINUOUS
     Route: 015
     Dates: start: 20080901

REACTIONS (4)
  - ABDOMINAL DISTENSION [None]
  - HYPOMENORRHOEA [None]
  - IUCD COMPLICATION [None]
  - MENSTRUATION DELAYED [None]
